FAERS Safety Report 4808935-2 (Version None)
Quarter: 2005Q4

REPORT INFORMATION
  Report Type: 
  Country: None (occurrence: None)
  Receive Date: 20051021
  Receipt Date: 20030911
  Transmission Date: 20060501
  Serious: No
  Sender: FDA-Public Use
  Company Number: EWC030936296

PATIENT
  Age: 22 Year
  Sex: Female

DRUGS (2)
  1. OLANZAPINE [Suspect]
     Indication: SCHIZOPHRENIA, PARANOID TYPE
     Dosage: 10MG/DAY
     Dates: start: 20030710
  2. REBOXETINE [Concomitant]

REACTIONS (2)
  - EOSINOPHILIA [None]
  - TREATMENT NONCOMPLIANCE [None]
